FAERS Safety Report 8842595 (Version 3)
Quarter: 2012Q4

REPORT INFORMATION
  Report Type: 
  Country: US (occurrence: US)
  Receive Date: 20121016
  Receipt Date: 20121211
  Transmission Date: 20130627
  Serious: Yes (Hospitalization)
  Sender: FDA-Public Use
  Company Number: US-PFIZER INC-2012256461

PATIENT
  Age: 79 Year
  Sex: Female

DRUGS (5)
  1. LYRICA [Suspect]
     Indication: BACK DISORDER
     Dosage: 50 mg, 3x/day
     Dates: start: 2012
  2. GLUCOTROL [Concomitant]
     Dosage: UNK
  3. ZOLOFT [Concomitant]
     Dosage: UNK
  4. ACETYLSALICYLIC ACID [Concomitant]
     Dosage: 81 mg, daily
  5. ZOCOR [Concomitant]
     Dosage: UNK

REACTIONS (2)
  - Muscle spasms [Unknown]
  - Cartilage injury [Unknown]
